FAERS Safety Report 5308651-7 (Version None)
Quarter: 2007Q2

REPORT INFORMATION
  Report Type: 
  Country: None (occurrence: None)
  Receive Date: 20070426
  Receipt Date: 20070419
  Transmission Date: 20071010
  Serious: Yes (Hospitalization)
  Sender: FDA-Public Use
  Company Number: 2007SE01646

PATIENT
  Age: 24601 Day
  Sex: Male
  Weight: 66 kg

DRUGS (3)
  1. BLOPRESS [Suspect]
     Indication: HYPERTENSION
     Route: 048
     Dates: start: 20070115, end: 20070131
  2. LEUPLIN FOR INJECTION KIT3.75 [Suspect]
     Indication: PROSTATE CANCER
     Route: 058
     Dates: start: 20070110, end: 20070110
  3. PROSTAL [Suspect]
     Indication: PROSTATE CANCER
     Route: 048
     Dates: start: 20061228, end: 20070207

REACTIONS (8)
  - ABDOMINAL PAIN UPPER [None]
  - ALANINE AMINOTRANSFERASE INCREASED [None]
  - ASPARTATE AMINOTRANSFERASE INCREASED [None]
  - BLOOD LACTATE DEHYDROGENASE INCREASED [None]
  - HEPATIC FUNCTION ABNORMAL [None]
  - HEPATOMEGALY [None]
  - LIVER DISORDER [None]
  - PYREXIA [None]
